FAERS Safety Report 13032369 (Version 1)
Quarter: 2016Q4

REPORT INFORMATION
  Report Type: Spontaneous
  Country: FR (occurrence: FR)
  Receive Date: 20161215
  Receipt Date: 20161215
  Transmission Date: 20170207
  Serious: Yes (Hospitalization)
  Sender: FDA-Public Use
  Company Number: FR-PFIZER INC-2016576352

PATIENT
  Age: 66 Year
  Sex: Male

DRUGS (7)
  1. FOLIC ACID. [Concomitant]
     Active Substance: FOLIC ACID
  2. PANTOPRAZOLE [Concomitant]
     Active Substance: PANTOPRAZOLE SODIUM
  3. TRIMEBUTINE [Suspect]
     Active Substance: TRIMEBUTINE
     Dosage: 3 DF, AS NEEDED
     Route: 048
     Dates: end: 20161026
  4. LASILIX /00032601/ [Suspect]
     Active Substance: FUROSEMIDE
     Indication: HYPERTENSION
     Dosage: UNK
     Route: 048
     Dates: end: 20161026
  5. LACTULOSE. [Concomitant]
     Active Substance: LACTULOSE
  6. ALDACTONE [Suspect]
     Active Substance: SPIRONOLACTONE
     Indication: HYPERTENSION
     Dosage: 75 MG, 1X/DAY
     Route: 048
     Dates: end: 20161026
  7. TAMSULOSIN [Suspect]
     Active Substance: TAMSULOSIN
     Dosage: 1 DF, 1X/DAY
     Route: 048
     Dates: end: 20161026

REACTIONS (5)
  - Seizure [Recovered/Resolved]
  - Periorbital haematoma [Recovered/Resolved]
  - Orthostatic hypotension [Recovered/Resolved]
  - Craniocerebral injury [Recovered/Resolved]
  - Fall [Recovered/Resolved]

NARRATIVE: CASE EVENT DATE: 20161022
